FAERS Safety Report 13509351 (Version 1)
Quarter: 2017Q2

REPORT INFORMATION
  Report Type: Spontaneous
  Country: US (occurrence: US)
  Receive Date: 20170503
  Receipt Date: 20170503
  Transmission Date: 20170830
  Serious: No
  Sender: FDA-Public Use
  Company Number: US-SA-2017SA018656

PATIENT
  Age: 74 Year
  Sex: Male
  Weight: 101.61 kg

DRUGS (2)
  1. ALIROCUMAB PREFILLED PEN [Suspect]
     Active Substance: ALIROCUMAB
     Indication: BLOOD CHOLESTEROL INCREASED
  2. PRALUENT [Suspect]
     Active Substance: ALIROCUMAB
     Indication: BLOOD CHOLESTEROL INCREASED
     Route: 065

REACTIONS (4)
  - Viral upper respiratory tract infection [Unknown]
  - Underdose [Unknown]
  - Cough [Unknown]
  - Device use issue [Unknown]

NARRATIVE: CASE EVENT DATE: 201701
